FAERS Safety Report 12549872 (Version 1)
Quarter: 2016Q3

REPORT INFORMATION
  Report Type: Spontaneous
  Country: US (occurrence: US)
  Receive Date: 20160712
  Receipt Date: 20160712
  Transmission Date: 20161109
  Serious: Yes (Other)
  Sender: FDA-Public Use
  Company Number: US-BIOGEN-2016BI00262203

PATIENT
  Sex: Male

DRUGS (1)
  1. PLEGRIDY [Suspect]
     Active Substance: PEGINTERFERON BETA-1A
     Indication: MULTIPLE SCLEROSIS
     Route: 065
     Dates: start: 20160223

REACTIONS (12)
  - Insomnia [Recovered/Resolved]
  - Rheumatoid arthritis [Not Recovered/Not Resolved]
  - Malaise [Recovered/Resolved]
  - Asthenia [Recovered/Resolved]
  - Fatigue [Recovered/Resolved]
  - Speech disorder [Recovered/Resolved]
  - Vision blurred [Recovered/Resolved]
  - Diplopia [Recovered/Resolved]
  - Muscle spasms [Not Recovered/Not Resolved]
  - Blindness transient [Recovered/Resolved]
  - Disturbance in attention [Recovered/Resolved]
  - Pain [Recovered/Resolved]
